FAERS Safety Report 7827652-8 (Version None)
Quarter: 2011Q4

REPORT INFORMATION
  Report Type: 
  Country: None (occurrence: None)
  Receive Date: 20111020
  Receipt Date: 20111011
  Transmission Date: 20120403
  Serious: Yes (Other)
  Sender: FDA-Public Use
  Company Number: PHHY2011JP91236

PATIENT
  Sex: Male

DRUGS (55)
  1. CLOZARIL [Suspect]
     Indication: SCHIZOPHRENIA
     Dosage: 12.5 MG,
     Route: 048
     Dates: start: 20100804, end: 20100804
  2. CLOZARIL [Suspect]
     Dosage: 175 MG,
     Route: 048
     Dates: start: 20100826, end: 20100828
  3. CLOZARIL [Suspect]
     Dosage: 250 MG,
     Route: 048
     Dates: start: 20100902, end: 20100908
  4. CLOZARIL [Suspect]
     Dosage: 300 MG,
     Route: 048
     Dates: start: 20100909, end: 20100912
  5. CLOZARIL [Suspect]
     Dosage: 550 MG
     Route: 048
     Dates: start: 20101216, end: 20101222
  6. SILECE [Concomitant]
     Dosage: 1.5 MG, UNK
     Route: 048
  7. CLONAZEPAM [Concomitant]
     Dosage: 2.5 MG, UNK
     Route: 048
  8. CLOZARIL [Suspect]
     Dosage: 600 MG
     Route: 048
     Dates: start: 20101223
  9. SILECE [Concomitant]
     Dosage: 2 MG,
     Route: 048
  10. SILECE [Concomitant]
     Dosage: 0.5 MG, UNK
     Route: 048
     Dates: end: 20110114
  11. ZOLPIDEM [Concomitant]
     Dosage: 5 MG,
     Route: 048
     Dates: start: 20100830, end: 20100901
  12. CLONAZEPAM [Concomitant]
     Dosage: 1.5 MG, UNK
     Route: 048
  13. CLONAZEPAM [Concomitant]
     Dosage: 4.5 MG, UNK
     Route: 048
  14. LAC B [Concomitant]
     Dosage: 3 G,
     Route: 048
     Dates: start: 20100911, end: 20100922
  15. MAGNESIUM OXIDE [Concomitant]
     Dosage: 990 MG
  16. MAGNESIUM OXIDE [Concomitant]
     Dates: end: 20100924
  17. DEPROMEL [Concomitant]
     Dosage: 70 MG,
     Route: 048
  18. CLOZARIL [Suspect]
     Dosage: 50 MG,
     Route: 048
     Dates: start: 20100808, end: 20100811
  19. CLOZARIL [Suspect]
     Dosage: 125 MG
     Dates: start: 20100819, end: 20100821
  20. CLOZARIL [Suspect]
     Dosage: 400 MG,
     Route: 048
     Dates: start: 20100923, end: 20100929
  21. CLOZARIL [Suspect]
     Dosage: 475 MG,
     Route: 048
     Dates: start: 20101021, end: 20101102
  22. SENNOSIDE A [Concomitant]
     Dosage: 36 MG
  23. DEPROMEL [Concomitant]
     Dosage: 50 MG,
     Route: 048
  24. DEPROMEL [Concomitant]
     Dosage: 100 MG,
     Route: 048
     Dates: start: 20110125
  25. CLOZARIL [Suspect]
     Dosage: 425 MG
     Route: 048
     Dates: start: 20100930, end: 20101013
  26. SENNOSIDE A [Concomitant]
     Dosage: 12 MG,
     Route: 048
     Dates: start: 20101021
  27. RISPERDAL [Concomitant]
     Route: 048
  28. LAC B [Concomitant]
     Dosage: 3 G,
     Route: 048
  29. CLOZARIL [Suspect]
     Dosage: 25 MG,
     Route: 048
     Dates: start: 20100805, end: 20100807
  30. CLOZARIL [Suspect]
     Dosage: 75 MG,
     Route: 048
     Dates: start: 20100812, end: 20100815
  31. CLOZARIL [Suspect]
     Dosage: 100 MG,
     Route: 048
     Dates: start: 20100816, end: 20100818
  32. CLOZARIL [Suspect]
     Dosage: 150 MG
     Route: 048
     Dates: start: 20100822, end: 20100825
  33. CLOZARIL [Suspect]
     Dosage: 200 MG,
     Route: 048
     Dates: start: 20100829, end: 20100901
  34. CLOZARIL [Suspect]
     Dosage: 350 MG,
     Route: 048
     Dates: start: 20100913, end: 20100922
  35. CLOZARIL [Suspect]
     Dosage: 450 MG,
     Route: 048
     Dates: start: 20101014, end: 20101020
  36. CLOZARIL [Suspect]
     Dosage: 500 MG
     Route: 048
     Dates: start: 20101103, end: 20101208
  37. CLOZARIL [Suspect]
     Dosage: 525 MG
     Route: 048
     Dates: start: 20101209, end: 20101215
  38. SENNOSIDE A [Concomitant]
     Dosage: 12 MG,
     Route: 048
     Dates: end: 20101112
  39. CLONAZEPAM [Concomitant]
     Dosage: 3 MG, UNK
     Route: 048
  40. CLONAZEPAM [Concomitant]
     Dosage: 5 MG, UNK
     Route: 048
  41. MAGNESIUM OXIDE [Concomitant]
     Dosage: 990 MG
  42. MAGNESIUM OXIDE [Concomitant]
     Dosage: 1980 MG,
  43. RABEPRAZOLE SODIUM [Concomitant]
     Dosage: 10 MG,
     Route: 048
     Dates: start: 20101012
  44. NORVASC [Concomitant]
     Dosage: 5 MG,
     Route: 048
  45. CLONAZEPAM [Concomitant]
     Dosage: 2 MG, UNK
     Route: 048
  46. CLONAZEPAM [Concomitant]
     Dosage: 6 MG, UNK
     Route: 048
  47. CLONAZEPAM [Concomitant]
     Dosage: 1 MG,
     Route: 048
     Dates: start: 20100909
  48. CLONAZEPAM [Concomitant]
     Dosage: 0.5 MG, UNK
     Route: 048
  49. CLONAZEPAM [Concomitant]
     Dosage: 4 MG, UNK
     Route: 048
  50. MAGNESIUM OXIDE [Concomitant]
     Dosage: 660 MG,
  51. SILECE [Concomitant]
     Dosage: 1 MG, UNK
     Route: 048
  52. CLONAZEPAM [Concomitant]
     Dosage: 3.5 MG, UNK
     Route: 048
  53. CLONAZEPAM [Concomitant]
     Dosage: 5.5 MG, UNK
     Route: 048
  54. LAC B [Concomitant]
     Dosage: 3.5 G,
     Route: 048
  55. DAI-KENCHU-TO [Concomitant]
     Dosage: 7.5 MG, UNK
     Dates: start: 20101009, end: 20101022

REACTIONS (1)
  - BRAIN NEOPLASM [None]
